FAERS Safety Report 17256127 (Version 1)
Quarter: 2020Q1

REPORT INFORMATION
  Report Type: Spontaneous
  Country: US (occurrence: US)
  Receive Date: 20200110
  Receipt Date: 20200110
  Transmission Date: 20200409
  Serious: Yes (Hospitalization)
  Sender: FDA-Public Use
  Company Number: US-ASTRAZENECA-2020SE03046

PATIENT
  Sex: Female
  Weight: 4.7 kg

DRUGS (1)
  1. SYNAGIS [Suspect]
     Active Substance: PALIVIZUMAB
     Indication: SMALL FOR DATES BABY
     Route: 030

REACTIONS (1)
  - Respiratory syncytial virus infection [Unknown]
